FAERS Safety Report 18135900 (Version 2)
Quarter: 2020Q3

REPORT INFORMATION
  Report Type: Spontaneous
  Country: DE (occurrence: DE)
  Receive Date: 20200811
  Receipt Date: 20200929
  Transmission Date: 20201103
  Serious: Yes (Other)
  Sender: FDA-Public Use
  Company Number: NVSC2020DE220912

PATIENT
  Sex: Female

DRUGS (3)
  1. SANDOSTATIN LAR DEPOT [Suspect]
     Active Substance: OCTREOTIDE ACETATE
     Indication: PITUITARY TUMOUR
     Dosage: 30 MG, QMO (INJECTION IN BUTTOCKS)(1X1 INJECTION EVERY 28 DAYS)
     Route: 065
     Dates: start: 20200701, end: 20200701
  2. SANDOSTATIN LAR DEPOT [Suspect]
     Active Substance: OCTREOTIDE ACETATE
     Indication: ACROMEGALY
     Dosage: 30 MG, QMO (INJECTION IN BUTTOCKS)(1X1 INJECTION EVERY 28 DAYS)
     Route: 065
  3. SANDOSTATIN LAR DEPOT [Suspect]
     Active Substance: OCTREOTIDE ACETATE
     Dosage: 30 MG, QMO (INJECTION IN BUTTOCKS)(1X1 INJECTION EVERY 28 DAYS)
     Route: 065
     Dates: start: 20200729

REACTIONS (5)
  - Internal haemorrhage [Unknown]
  - Injection site haematoma [Not Recovered/Not Resolved]
  - Insomnia [Unknown]
  - Injection site pain [Unknown]
  - Injection site inflammation [Unknown]
